FAERS Safety Report 9224392 (Version 1)
Quarter: 2013Q2

REPORT INFORMATION
  Report Type: Spontaneous
  Country: US (occurrence: None)
  Receive Date: 20130409
  Receipt Date: 20130409
  Transmission Date: 20140414
  Serious: No
  Sender: FDA-Public Use
  Company Number: None

PATIENT
  Sex: Female
  Weight: 66.23 kg

DRUGS (2)
  1. PYLERA [Suspect]
     Indication: DIARRHOEA
     Dosage: 3 CAPSULES 4X DAILY MOUTH
     Route: 048
     Dates: start: 002003, end: 002303
  2. OMEPRAZOLE [Concomitant]

REACTIONS (1)
  - Diarrhoea [None]
